FAERS Safety Report 18108969 (Version 8)
Quarter: 2022Q4

REPORT INFORMATION
  Report Type: Spontaneous
  Country: US (occurrence: US)
  Receive Date: 20200804
  Receipt Date: 20221110
  Transmission Date: 20230113
  Serious: No
  Sender: FDA-Public Use
  Company Number: US-PFIZER INC-2020291639

PATIENT
  Age: 43 Year
  Sex: Female

DRUGS (5)
  1. IBRANCE [Suspect]
     Active Substance: PALBOCICLIB
     Indication: Breast cancer female
     Dosage: 100 MG, ONCE A DAY (FOR 21 DAYS)
     Dates: start: 20180808
  2. IBRANCE [Suspect]
     Active Substance: PALBOCICLIB
     Dosage: 75MG, ONCE A DAY (FOR 21 DAYS)
     Dates: start: 20180808
  3. IBRANCE [Suspect]
     Active Substance: PALBOCICLIB
     Dosage: 75 MG, CYCLIC (TAKE 1 TABLET BY MOUTH ONCE DAILY FOR 21 DAYS, THEN OFF FOR 7DAYS)
     Route: 048
     Dates: start: 20210622
  4. OMEPRAZOLE [Concomitant]
     Active Substance: OMEPRAZOLE
     Dosage: 20 MG
  5. TYLENOL [Concomitant]
     Active Substance: ACETAMINOPHEN
     Dosage: 500 MG

REACTIONS (4)
  - Nausea [Not Recovered/Not Resolved]
  - Fatigue [Not Recovered/Not Resolved]
  - Palpitations [Unknown]
  - Dizziness [Unknown]
